FAERS Safety Report 16590734 (Version 2)
Quarter: 2022Q1

REPORT INFORMATION
  Report Type: Report from Study
  Country: BR (occurrence: BR)
  Receive Date: 20190718
  Receipt Date: 20220102
  Transmission Date: 20220423
  Serious: Yes (Other)
  Sender: FDA-Public Use
  Company Number: BR-ABBVIE-19K-020-2857027-00

PATIENT
  Sex: Female

DRUGS (2)
  1. HUMIRA [Suspect]
     Active Substance: ADALIMUMAB
     Indication: Crohn^s disease
     Route: 058
     Dates: start: 20181109
  2. HUMIRA [Suspect]
     Active Substance: ADALIMUMAB
     Route: 058

REACTIONS (7)
  - Intestinal stenosis [Unknown]
  - Gastrointestinal inflammation [Unknown]
  - Gastrointestinal inflammation [Recovered/Resolved]
  - Gastrointestinal inflammation [Unknown]
  - Surgery [Unknown]
  - Drug ineffective [Unknown]
  - Therapeutic product effect decreased [Unknown]
